FAERS Safety Report 5900389-8 (Version None)
Quarter: 2008Q3

REPORT INFORMATION
  Report Type: 
  Country: None (occurrence: None)
  Receive Date: 20080926
  Receipt Date: 20080918
  Transmission Date: 20090109
  Serious: Yes (Other)
  Sender: FDA-Public Use
  Company Number: US-JNJCH-2008024111

PATIENT
  Age: 35 Year
  Sex: Male
  Weight: 63.5 kg

DRUGS (1)
  1. LISTERINE TOOTH DEFENSE [Suspect]
     Indication: ALCOHOL USE
     Dosage: TEXT:THE WHOLE BOTTLE
     Route: 048

REACTIONS (4)
  - ABNORMAL BEHAVIOUR [None]
  - AGITATION [None]
  - ALCOHOL PROBLEM [None]
  - INCORRECT ROUTE OF DRUG ADMINISTRATION [None]
